FAERS Safety Report 6838743-2 (Version None)
Quarter: 2010Q3

REPORT INFORMATION
  Report Type: 
  Country: None (occurrence: None)
  Receive Date: 20100713
  Receipt Date: 20070620
  Transmission Date: 20110219
  Serious: Yes (Other)
  Sender: FDA-Public Use
  Company Number: US-PFIZER INC-2007035138

PATIENT
  Sex: Male
  Weight: 122.72 kg

DRUGS (1)
  1. CHANTIX [Suspect]
     Indication: SMOKING CESSATION THERAPY
     Dates: start: 20070101

REACTIONS (4)
  - IMMUNE SYSTEM DISORDER [None]
  - ORAL CANDIDIASIS [None]
  - ORAL HERPES [None]
  - TYPE 2 DIABETES MELLITUS [None]
